FAERS Safety Report 6652574-8 (Version None)
Quarter: 2010Q1

REPORT INFORMATION
  Report Type: 
  Country: None (occurrence: None)
  Receive Date: 20100326
  Receipt Date: 20100317
  Transmission Date: 20100710
  Serious: Yes (Hospitalization)
  Sender: FDA-Public Use
  Company Number: US-BIOGENIDEC-2009BI000871

PATIENT
  Age: 40 Year
  Sex: Female

DRUGS (2)
  1. TYSABRI [Suspect]
     Indication: MULTIPLE SCLEROSIS
     Route: 042
     Dates: start: 20081017, end: 20091106
  2. KEPPRA [Concomitant]
     Indication: CONVULSION

REACTIONS (8)
  - CONVULSION [None]
  - FALL [None]
  - INJURY [None]
  - LOSS OF CONTROL OF LEGS [None]
  - SENSORY DISTURBANCE [None]
  - TREMOR [None]
  - VAGINAL DISCHARGE [None]
  - VISION BLURRED [None]
